FAERS Safety Report 9061845 (Version 1)
Quarter: 2013Q1

REPORT INFORMATION
  Report Type: Spontaneous
  Country: US (occurrence: None)
  Receive Date: 20130122
  Receipt Date: 20130122
  Transmission Date: 20140127
  Serious: Yes (Other)
  Sender: FDA-Public Use
  Company Number: ACO_33745_2013

PATIENT
  Sex: Female
  Weight: 75.7 kg

DRUGS (3)
  1. AMPYRA (DALFAMPRIDLNE) TABLET, 10MG [Suspect]
     Indication: PRODUCT USED FOR UNKNOWN INDICATION
     Dosage: 12 HRS
     Route: 048
     Dates: start: 201202
  2. COPAXONE (GLATIRAMER ACETATE) [Suspect]
     Indication: PRODUCT USED FOR UNKNOWN INDICATION
  3. DELTA(9)-TETRAHYDROCANNABINOLIC ACID [Suspect]
     Indication: PRODUCT USED FOR UNKNOWN INDICATION

REACTIONS (3)
  - Convulsion [None]
  - Tremor [None]
  - Nausea [None]
